FAERS Safety Report 20206460 (Version 3)
Quarter: 2022Q1

REPORT INFORMATION
  Report Type: Spontaneous
  Country: US (occurrence: None)
  Receive Date: 20211220
  Receipt Date: 20220209
  Transmission Date: 20220424
  Serious: No
  Sender: FDA-Public Use
  Company Number: 2021A849055

PATIENT
  Age: 61 Year
  Sex: Male
  Weight: 117.9 kg

DRUGS (2)
  1. BYDUREON BCISE [Suspect]
     Active Substance: EXENATIDE
     Indication: Type 2 diabetes mellitus
     Route: 065
     Dates: start: 2021
  2. COVID VACCINE [Concomitant]
     Route: 065

REACTIONS (6)
  - Bradykinesia [Unknown]
  - Weight decreased [Unknown]
  - Asthenia [Unknown]
  - Incorrect dose administered by device [Unknown]
  - Wrong technique in device usage process [Unknown]
  - Device leakage [Unknown]

NARRATIVE: CASE EVENT DATE: 20210101
